FAERS Safety Report 9306484 (Version 1)
Quarter: 2013Q2

REPORT INFORMATION
  Report Type: Spontaneous
  Country: US (occurrence: US)
  Receive Date: 20130523
  Receipt Date: 20130523
  Transmission Date: 20140414
  Serious: No
  Sender: FDA-Public Use
  Company Number: US-ASTRAZENECA-2013SE34487

PATIENT
  Age: 68 Year
  Sex: Female
  Weight: 77.1 kg

DRUGS (4)
  1. SYMBICORT [Suspect]
     Indication: EMPHYSEMA
     Dosage: 320 MCG  TWO PUFF TWICE A DAY
     Route: 055
     Dates: start: 20130509, end: 20130511
  2. SPIRIVA [Concomitant]
     Indication: EMPHYSEMA
  3. EYE DROPS [Concomitant]
     Indication: GLAUCOMA
  4. SIMVUSTATIN [Concomitant]
     Indication: BLOOD PRESSURE

REACTIONS (3)
  - Hypoaesthesia [Recovered/Resolved]
  - Swelling face [Recovered/Resolved]
  - Pruritus [Recovered/Resolved]
